FAERS Safety Report 6326884-8 (Version None)
Quarter: 2009Q3

REPORT INFORMATION
  Report Type: 
  Country: None (occurrence: None)
  Receive Date: 20090825
  Receipt Date: 20080528
  Transmission Date: 20100115
  Serious: Yes (Hospitalization)
  Sender: FDA-Public Use
  Company Number: US-JNJFOC-20090807109

PATIENT

DRUGS (1)
  1. LEVAQUIN [Suspect]
     Indication: CELLULITIS
     Route: 065

REACTIONS (1)
  - URINARY TRACT INFECTION [None]
